FAERS Safety Report 16563985 (Version 1)
Quarter: 2019Q3

REPORT INFORMATION
  Report Type: Spontaneous
  Country: US (occurrence: US)
  Receive Date: 20190712
  Receipt Date: 20190712
  Transmission Date: 20191004
  Serious: Yes (Other)
  Sender: FDA-Public Use
  Company Number: US-ROCHE-2349303

PATIENT
  Sex: Female

DRUGS (1)
  1. ALECENSA [Suspect]
     Active Substance: ALECTINIB HYDROCHLORIDE
     Indication: PRODUCT USED FOR UNKNOWN INDICATION
     Dosage: ONGOING: YES
     Route: 065
     Dates: start: 201906

REACTIONS (6)
  - Abdominal distension [Unknown]
  - Peripheral swelling [Unknown]
  - Weight increased [Unknown]
  - Rectal haemorrhage [Unknown]
  - Fatigue [Unknown]
  - Muscle spasms [Unknown]
